FAERS Safety Report 12986522 (Version 1)
Quarter: 2016Q4

REPORT INFORMATION
  Report Type: Spontaneous
  Country: SE (occurrence: SE)
  Receive Date: 20161130
  Receipt Date: 20161130
  Transmission Date: 20170207
  Serious: Yes (Other)
  Sender: FDA-Public Use
  Company Number: SE-TEVA-713158ACC

PATIENT
  Age: 37 Year
  Sex: Male

DRUGS (1)
  1. ANTABUS [Suspect]
     Active Substance: DISULFIRAM

REACTIONS (1)
  - Toxic skin eruption [Recovered/Resolved]

NARRATIVE: CASE EVENT DATE: 20160926
